FAERS Safety Report 5318528-9 (Version None)
Quarter: 2007Q2

REPORT INFORMATION
  Report Type: 
  Country: None (occurrence: None)
  Receive Date: 20070501
  Receipt Date: 20070420
  Transmission Date: 20071010
  Serious: Yes (Other)
  Sender: FDA-Public Use
  Company Number: TRP_0934_2007

PATIENT
  Age: 52 Year
  Sex: Female

DRUGS (2)
  1. RIBASPHERE [Suspect]
     Indication: DRUG USE FOR UNKNOWN INDICATION
     Dosage: (200 MG ORAL)
     Route: 048
     Dates: start: 20061001
  2. PEG-INTRON [Suspect]
     Indication: DRUG USE FOR UNKNOWN INDICATION
     Dosage: (120? 1X/WEEK SUBCUTANEOUS)
     Route: 058
     Dates: start: 20061001

REACTIONS (5)
  - DANDRUFF [None]
  - DRY SKIN [None]
  - INFLUENZA LIKE ILLNESS [None]
  - SKIN EXFOLIATION [None]
  - SWOLLEN TONGUE [None]
